FAERS Safety Report 7833759-1 (Version None)
Quarter: 2011Q4

REPORT INFORMATION
  Report Type: 
  Country: None (occurrence: None)
  Receive Date: 20111024
  Receipt Date: 20111019
  Transmission Date: 20120403
  Serious: Yes (Other)
  Sender: FDA-Public Use
  Company Number: US-ELI_LILLY_AND_COMPANY-US201110005264

PATIENT
  Age: 47 Year
  Sex: Female

DRUGS (3)
  1. ANGIOMAX [Concomitant]
  2. EFFIENT [Suspect]
     Indication: STENT PLACEMENT
     Dosage: 60 MG, UNK
  3. EFFIENT [Suspect]
     Dosage: 10 MG, QD

REACTIONS (1)
  - STENT EMBOLISATION [None]
